FAERS Safety Report 9301799 (Version 1)
Quarter: 2013Q2

REPORT INFORMATION
  Report Type: Spontaneous
  Country: US (occurrence: US)
  Receive Date: 20130521
  Receipt Date: 20130521
  Transmission Date: 20140414
  Serious: No
  Sender: FDA-Public Use
  Company Number: US-TEVA-339726USA

PATIENT
  Age: 40 Year
  Sex: Female
  Weight: 95.34 kg

DRUGS (4)
  1. ACTIQ [Suspect]
     Indication: CANCER PAIN
     Route: 002
     Dates: start: 2007
  2. OXYCODONE HYDROCHLORIDE [Concomitant]
     Indication: CANCER PAIN
     Dosage: 40 MILLIGRAM DAILY;
     Route: 048
  3. MORPHINE SULFATE [Concomitant]
     Indication: CANCER PAIN
     Dosage: 60 MILLIGRAM DAILY;
     Route: 048
  4. GABAPENTIN [Concomitant]
     Indication: NEURALGIA
     Dosage: 1200 MILLIGRAM DAILY;
     Route: 048

REACTIONS (1)
  - Headache [Not Recovered/Not Resolved]
